FAERS Safety Report 6013543-4 (Version None)
Quarter: 2008Q4

REPORT INFORMATION
  Report Type: 
  Country: None (occurrence: None)
  Receive Date: 20081219
  Receipt Date: 20081216
  Transmission Date: 20090506
  Serious: Yes (Death, Hospitalization, Other)
  Sender: FDA-Public Use
  Company Number: PHEH2008US10914

PATIENT
  Sex: Male
  Weight: 80 kg

DRUGS (19)
  1. GLEEVEC [Suspect]
     Indication: METASTATIC MALIGNANT MELANOMA
     Dosage: 400 MG, QD
     Route: 048
     Dates: start: 20080516, end: 20080701
  2. GLEEVEC [Suspect]
     Indication: METASTASES TO LUNG
  3. GLEEVEC [Suspect]
     Indication: MALIGNANT MELANOMA OF SITES OTHER THAN SKIN
  4. ACETAMINOPHEN [Concomitant]
     Dosage: 325 MG, PRN Q 6 HOURS
     Route: 048
  5. DUONEB [Concomitant]
     Dosage: UNK
  6. ALLOPURINOL [Concomitant]
     Dosage: 100 MG, QD
     Route: 048
  7. ALPRAZOLAM [Concomitant]
     Dosage: 0.25 MG, QD
     Route: 048
  8. MYLANTA                                 /USA/ [Concomitant]
     Dosage: 30 ML, PRN Q 6 HOURS
     Route: 048
  9. ATENOLOL [Concomitant]
     Dosage: 100 MG, QD
     Route: 048
  10. MULTIVITAMIN ^LAPPE^ [Concomitant]
     Dosage: 1 TABLET, QD
     Route: 048
  11. DIGOXIN [Concomitant]
     Dosage: 250 UG, QD
     Route: 048
  12. FLUTICASONE PROPIONATE [Concomitant]
     Dosage: UNK
  13. LOVASTATIN [Concomitant]
     Dosage: 400 MG, QHS
     Route: 048
  14. OMEPRAZOLE [Concomitant]
     Dosage: 20 MG, QD
     Route: 048
  15. COMPAZINE [Concomitant]
     Dosage: 10 MG, PRN Q 6 HOURS
     Route: 048
  16. MAVIK [Concomitant]
     Dosage: 4 MG, QD
     Route: 048
  17. AMBIEN [Concomitant]
     Dosage: 5 TO 10 MG, QHS
     Route: 048
  18. ALBUTEROL [Concomitant]
     Indication: COUGH
     Dosage: 0.83 MG/ML, PRN Q 4 HOURS
  19. ALBUTEROL [Concomitant]
     Indication: WHEEZING

REACTIONS (33)
  - ABDOMINAL PAIN [None]
  - ALANINE AMINOTRANSFERASE INCREASED [None]
  - ALBUMIN URINE PRESENT [None]
  - ALCOHOL POISONING [None]
  - ANION GAP INCREASED [None]
  - ANXIETY [None]
  - APNOEA [None]
  - ASPARTATE AMINOTRANSFERASE INCREASED [None]
  - BLOOD CREATININE INCREASED [None]
  - BLOOD GLUCOSE INCREASED [None]
  - BLOOD POTASSIUM INCREASED [None]
  - BLOOD UREA INCREASED [None]
  - CONSTIPATION [None]
  - COUGH [None]
  - DECREASED APPETITE [None]
  - DEPRESSED LEVEL OF CONSCIOUSNESS [None]
  - DISEASE PROGRESSION [None]
  - DYSPEPSIA [None]
  - DYSPNOEA [None]
  - FATIGUE [None]
  - GASTROINTESTINAL HAEMORRHAGE [None]
  - GENERAL PHYSICAL HEALTH DETERIORATION [None]
  - HAEMOPTYSIS [None]
  - HYPERTENSION [None]
  - MELAENA [None]
  - METASTATIC MALIGNANT MELANOMA [None]
  - NAUSEA [None]
  - OEDEMA PERIPHERAL [None]
  - PAIN [None]
  - PULSE ABSENT [None]
  - RESTLESSNESS [None]
  - SOMNOLENCE [None]
  - URINE BILIRUBIN INCREASED [None]
